FAERS Safety Report 5817531-X (Version None)
Quarter: 2008Q3

REPORT INFORMATION
  Report Type: 
  Country: None (occurrence: None)
  Receive Date: 20080722
  Receipt Date: 20080714
  Transmission Date: 20090109
  Serious: Yes (Hospitalization)
  Sender: FDA-Public Use
  Company Number: US-MERCK-0705USA02843

PATIENT
  Age: 58 Year
  Sex: Female

DRUGS (1)
  1. FOSAMAX [Suspect]
     Indication: OSTEOPOROSIS
     Route: 048
     Dates: start: 20050101

REACTIONS (6)
  - DENTAL CARIES [None]
  - GINGIVAL SWELLING [None]
  - HYPERTENSION [None]
  - LOOSE TOOTH [None]
  - PAIN IN JAW [None]
  - PNEUMONIA [None]
